FAERS Safety Report 9411150 (Version 1)
Quarter: 2013Q3

REPORT INFORMATION
  Report Type: Spontaneous
  Country: TR (occurrence: TR)
  Receive Date: 20130721
  Receipt Date: 20130721
  Transmission Date: 20140515
  Serious: Yes (Hospitalization)
  Sender: FDA-Public Use
  Company Number: PHHY2013TR076069

PATIENT
  Age: 20 Year
  Sex: Male

DRUGS (3)
  1. METFORMIN [Suspect]
     Dosage: 28 G, (1 IN 1 TOTAL)
  2. DICLOFENAC [Suspect]
     Dosage: UNK (MANY PILLS)
  3. ACTIVATED CHARCOAL [Concomitant]

REACTIONS (6)
  - Suicide attempt [Recovered/Resolved]
  - Acidosis [Recovered/Resolved]
  - Blood lactic acid increased [Recovered/Resolved]
  - Nausea [Unknown]
  - Vomiting [Unknown]
  - Overdose [Recovered/Resolved]
